FAERS Safety Report 25347248 (Version 3)
Quarter: 2025Q3

REPORT INFORMATION
  Report Type: Spontaneous
  Country: US (occurrence: US)
  Receive Date: 20250522
  Receipt Date: 20250708
  Transmission Date: 20251021
  Serious: Yes (Other)
  Sender: PFIZER
  Company Number: US-PFIZER INC-PV202300001147

PATIENT
  Age: 79 Year
  Sex: Female
  Weight: 78.02 kg

DRUGS (2)
  1. IBRANCE [Suspect]
     Active Substance: PALBOCICLIB
     Indication: Breast cancer stage IV
     Route: 048
  2. IBRANCE [Suspect]
     Active Substance: PALBOCICLIB
     Route: 048
     Dates: start: 2018, end: 202506

REACTIONS (3)
  - Neuropathy peripheral [Not Recovered/Not Resolved]
  - Product prescribing error [Unknown]
  - Thinking abnormal [Unknown]
